FAERS Safety Report 10209328 (Version 1)
Quarter: 2014Q2

REPORT INFORMATION
  Report Type: Spontaneous
  Country: CN (occurrence: CN)
  Receive Date: 20140531
  Receipt Date: 20140531
  Transmission Date: 20141212
  Serious: Yes (Other)
  Sender: FDA-Public Use
  Company Number: CN-ROCHE-1407812

PATIENT
  Age: 21 Year
  Sex: Female
  Weight: 48 kg

DRUGS (4)
  1. ROCEPHIN [Suspect]
     Indication: LUNG INFECTION
     Route: 041
     Dates: start: 20130529, end: 20130607
  2. PANTOPRAZOLE SODIUM [Suspect]
     Indication: BEHCET^S SYNDROME
     Route: 041
     Dates: start: 20130529, end: 20130607
  3. EDARAVONE [Suspect]
     Indication: BEHCET^S SYNDROME
     Route: 041
     Dates: start: 20130529, end: 20130607
  4. AMBROXOL [Concomitant]
     Route: 065
     Dates: start: 20130529

REACTIONS (3)
  - Hepatic function abnormal [Recovering/Resolving]
  - Pneumonia [Unknown]
  - Arrhythmia [Unknown]
